FAERS Safety Report 6097125-4 (Version None)
Quarter: 2009Q1

REPORT INFORMATION
  Report Type: 
  Country: None (occurrence: None)
  Receive Date: 20090227
  Receipt Date: 20090217
  Transmission Date: 20090719
  Serious: Yes (Other)
  Sender: FDA-Public Use
  Company Number: IE-PFIZER INC-2009172749

PATIENT

DRUGS (1)
  1. PHENYTOIN SODIUM CAP [Suspect]

REACTIONS (2)
  - CONVULSION [None]
  - DYSPHAGIA [None]
